FAERS Safety Report 6463150-4 (Version None)
Quarter: 2009Q4

REPORT INFORMATION
  Report Type: 
  Country: None (occurrence: None)
  Receive Date: 20091123
  Receipt Date: 20091109
  Transmission Date: 20100525
  Serious: Yes (Disabling, Other)
  Sender: FDA-Public Use
  Company Number: 2009AC000189

PATIENT
  Age: 82 Year
  Sex: Female

DRUGS (51)
  1. DIGOXIN [Suspect]
     Dosage: PO
     Route: 048
  2. DIGOXIN [Suspect]
     Dosage: 0.25 MG;QD;PO
     Route: 048
     Dates: start: 19980301, end: 20080228
  3. ATENOLOL [Concomitant]
  4. COUMADIN [Concomitant]
  5. CYMBALTA [Concomitant]
  6. FAMOTIDINE [Concomitant]
  7. ISOSORBIDE MONONITRATE [Concomitant]
  8. LASIX [Concomitant]
  9. LISINOPRIL [Concomitant]
  10. ENDOCERT [Concomitant]
  11. REQUIP [Concomitant]
  12. ALDACTONE [Concomitant]
  13. VICODIN [Concomitant]
  14. VYTORIN [Concomitant]
  15. CHOLESTYRAMINE LIGHT [Concomitant]
  16. CRESTOR [Concomitant]
  17. K-DUR [Concomitant]
  18. POTASSIUM [Concomitant]
  19. LIPITOR [Concomitant]
  20. SPIRONOLACTONE [Concomitant]
  21. TRAMADOL HCL [Concomitant]
  22. WARFARIN SODIUM [Concomitant]
  23. ZETIA [Concomitant]
  24. ADVIL [Concomitant]
  25. ASPIRIN [Concomitant]
  26. ASPIRIN [Concomitant]
  27. BIO-MEGA3 [Concomitant]
  28. CRANBERRY EXTRACT [Concomitant]
  29. FERRAMIN [Concomitant]
  30. HEPASIL DTX [Concomitant]
  31. SUDAFED 12 HOUR [Concomitant]
  32. TUMS WITH CALCIUM [Concomitant]
  33. VITAMIN D [Concomitant]
  34. METOPROLOL [Concomitant]
  35. GLIMEPIRIDE [Concomitant]
  36. IRON [Concomitant]
  37. IMDUR [Concomitant]
  38. LEVAQUIN [Concomitant]
  39. ASCORBIC ACID [Concomitant]
  40. PERCOCET [Concomitant]
  41. CEPHALEXIN [Concomitant]
  42. XENADERM [Concomitant]
  43. ROPINIROLE HYDROCHLORIDE [Concomitant]
  44. SULFAMETHOXAZOLE [Concomitant]
  45. MUPIROCIN [Concomitant]
  46. OXYCODONE [Concomitant]
  47. POTASSIUM CHLORIDE [Concomitant]
  48. METOLAZONE [Concomitant]
  49. HYDROCODONE [Concomitant]
  50. KLOR-CON [Concomitant]
  51. IBUPROFEN [Concomitant]

REACTIONS (26)
  - ANHEDONIA [None]
  - ANXIETY [None]
  - ARTHRALGIA [None]
  - ASTHENIA [None]
  - ATRIOVENTRICULAR BLOCK [None]
  - BLOOD PRESSURE FLUCTUATION [None]
  - BRADYCARDIA [None]
  - CONFUSIONAL STATE [None]
  - CONVULSION [None]
  - DEPRESSION [None]
  - DIARRHOEA [None]
  - DRUG TOXICITY [None]
  - FATIGUE [None]
  - HEART RATE IRREGULAR [None]
  - JOINT SWELLING [None]
  - MULTIPLE INJURIES [None]
  - MUSCULOSKELETAL STIFFNESS [None]
  - MYALGIA [None]
  - NAUSEA [None]
  - OEDEMA PERIPHERAL [None]
  - PALPITATIONS [None]
  - PROCTALGIA [None]
  - RENAL IMPAIRMENT [None]
  - THERAPEUTIC AGENT TOXICITY [None]
  - VISUAL IMPAIRMENT [None]
  - VOMITING [None]
